FAERS Safety Report 20595644 (Version 2)
Quarter: 2022Q2

REPORT INFORMATION
  Report Type: Spontaneous
  Country: US (occurrence: US)
  Receive Date: 20220315
  Receipt Date: 20220406
  Transmission Date: 20220721
  Serious: Yes (Hospitalization)
  Sender: FDA-Public Use
  Company Number: US-PFIZER INC-202200319746

PATIENT
  Age: 21 Year
  Sex: Female

DRUGS (3)
  1. PREMARIN [Suspect]
     Active Substance: ESTROGENS, CONJUGATED
     Indication: Transgender hormonal therapy
     Dosage: UNK
  2. ESTRADIOL [Suspect]
     Active Substance: ESTRADIOL
     Indication: Transgender operation
     Dosage: UNK
  3. SUPPRELIN [Suspect]
     Active Substance: HISTRELIN ACETATE
     Indication: Transgender hormonal therapy
     Dosage: UNK

REACTIONS (1)
  - Breast mass [Unknown]
